FAERS Safety Report 4509736-5 (Version None)
Quarter: 2004Q4

REPORT INFORMATION
  Report Type: 
  Country: None (occurrence: None)
  Receive Date: 20041124
  Receipt Date: 20041118
  Transmission Date: 20050328
  Serious: Yes (Hospitalization)
  Sender: FDA-Public Use
  Company Number: PHFR2004GB04297

PATIENT
  Age: 27 Year
  Sex: Female

DRUGS (2)
  1. CLOZARIL [Suspect]
     Indication: SCHIZOPHRENIA
     Dates: start: 20010228, end: 20041112
  2. CLOZARIL [Suspect]
     Dosage: 300MG ONCE
     Dates: start: 20041117

REACTIONS (3)
  - MEDICATION ERROR [None]
  - POISONING [None]
  - SEDATION [None]
